FAERS Safety Report 5081549-8 (Version None)
Quarter: 2006Q3

REPORT INFORMATION
  Report Type: 
  Country: None (occurrence: None)
  Receive Date: 20060811
  Receipt Date: 20060727
  Transmission Date: 20061208
  Serious: Yes (Death)
  Sender: FDA-Public Use
  Company Number: 2006S1007006

PATIENT
  Age: 45 Year
  Sex: Female

DRUGS (7)
  1. CLOZAPINE [Suspect]
     Dosage: 75 MG;QD;PO
     Route: 048
     Dates: start: 20030801, end: 20060701
  2. CLOZAPINE [Suspect]
     Dosage: 400 MG;QD;PO
     Route: 048
     Dates: start: 20030801, end: 20060701
  3. RISPERIDONE [Concomitant]
  4. LITHIUM [Concomitant]
  5. LEVOTHYROXIN [Concomitant]
  6. RANITIDINE [Concomitant]
  7. ACETYLSALICYLIC ACID SRT [Concomitant]

REACTIONS (1)
  - SMALL CELL CARCINOMA [None]
